FAERS Safety Report 21044699 (Version 2)
Quarter: 2022Q3

REPORT INFORMATION
  Report Type: Spontaneous
  Country: US (occurrence: US)
  Receive Date: 20220705
  Receipt Date: 20220804
  Transmission Date: 20221027
  Serious: No
  Sender: FDA-Public Use
  Company Number: US-ORGANON-O2206USA002621

PATIENT
  Age: 22 Year
  Sex: Female
  Weight: 84.807 kg

DRUGS (1)
  1. ETONOGESTREL [Suspect]
     Active Substance: ETONOGESTREL
     Indication: Contraception
     Dosage: 1 ROD OF 68 MG IN LEFT ARM
     Route: 059
     Dates: start: 20170726, end: 20220715

REACTIONS (8)
  - Implant site fibrosis [Unknown]
  - Myalgia [Unknown]
  - Sensory disturbance [Unknown]
  - Implant site scar [Unknown]
  - Device issue [Recovered/Resolved]
  - Complication of device removal [Recovered/Resolved]
  - Incorrect product administration duration [Unknown]
  - Complication associated with device [Recovered/Resolved]

NARRATIVE: CASE EVENT DATE: 20170726
